FAERS Safety Report 7573628-8 (Version None)
Quarter: 2011Q2

REPORT INFORMATION
  Report Type: 
  Country: None (occurrence: None)
  Receive Date: 20110627
  Receipt Date: 20110614
  Transmission Date: 20111010
  Serious: Yes (Hospitalization)
  Sender: FDA-Public Use
  Company Number: JP-ROCHE-738906

PATIENT
  Sex: Male
  Weight: 58.5 kg

DRUGS (27)
  1. CAPECITABINE [Suspect]
     Dosage: XELODA 300(CAPECITABINE), NOTE: IT IS ONE ADMINISTERING WEEKLY HOLIDAY MEDICINE FOR TWO WEEKS.
     Route: 048
     Dates: start: 20100721, end: 20100804
  2. BEVACIZUMAB [Suspect]
     Route: 041
     Dates: start: 20100901, end: 20100901
  3. OXALIPLATIN [Suspect]
     Route: 041
     Dates: start: 20100811, end: 20100811
  4. OXALIPLATIN [Suspect]
     Route: 041
     Dates: start: 20100901, end: 20100901
  5. OXALIPLATIN [Suspect]
     Route: 041
     Dates: start: 20100922, end: 20100922
  6. DECADRON [Concomitant]
     Dosage: ONLY ON THE FIRST.
     Route: 048
     Dates: start: 20100626, end: 20100923
  7. CHLOR-TRIMETON [Concomitant]
     Dosage: ONLY ON THE FIRST.
     Route: 042
     Dates: start: 20100625, end: 20100922
  8. CAPECITABINE [Suspect]
     Dosage: XELODA 300(CAPECITABINE), NOTE: IT IS ONE ADMINISTERING WEEKLY HOLIDAY MEDICINE FOR TWO WEEKS.
     Route: 048
     Dates: start: 20100702, end: 20100709
  9. KYTRIL [Concomitant]
     Dosage: ONLY ON THE FIRST.
     Route: 042
     Dates: start: 20100625, end: 20100922
  10. DECADRON [Concomitant]
     Dosage: ONLY ON THE FIRST.
     Route: 042
     Dates: start: 20100625, end: 20100922
  11. CAPECITABINE [Suspect]
     Dosage: XELODA 300(CAPECITABINE), NOTE: IT IS ONE ADMINISTERING WEEKLY HOLIDAY MEDICINE FOR TWO WEEKS.
     Route: 048
     Dates: start: 20100811, end: 20100825
  12. NAUZELIN [Concomitant]
     Dosage: AUTOREGULATION IN POSTTREATMENT.7 DAYS.FORM: PERORAL AGENT.
     Route: 048
     Dates: start: 20100626, end: 20100929
  13. BEVACIZUMAB [Suspect]
     Indication: RECTAL CANCER
     Route: 041
     Dates: start: 20100625, end: 20100625
  14. BEVACIZUMAB [Suspect]
     Route: 041
     Dates: start: 20100721, end: 20100721
  15. BEVACIZUMAB [Suspect]
     Route: 041
     Dates: start: 20100811, end: 20100811
  16. HIRUDOID [Concomitant]
     Dosage: DOSAGE IS UNCERTAIN. DOSE FORM: OINTMENT AND CREAM.
     Route: 003
     Dates: start: 20100625, end: 20101019
  17. WHITE PETROLATUM [Concomitant]
     Dosage: DOSAGE IS UNCERTAIN. DOSE FORM: OINTMENT AND CREAM.
     Route: 003
     Dates: start: 20100625, end: 20101019
  18. EMEND [Concomitant]
     Dosage: POST TREATMENT DAY 2 AND 3.
     Route: 048
     Dates: start: 20100626, end: 20100924
  19. FAMOTIDINE [Concomitant]
     Route: 048
     Dates: start: 20100625
  20. OXALIPLATIN [Suspect]
     Indication: RECTAL CANCER
     Route: 041
     Dates: start: 20100625, end: 20100625
  21. EMEND [Concomitant]
     Dosage: ONLY ON THE FIRST.
     Route: 048
     Dates: start: 20100625, end: 20100922
  22. KYTRIL [Concomitant]
     Dosage: ONLY ON THE FIRST.
     Route: 048
     Dates: start: 20100626, end: 20100923
  23. CAPECITABINE [Suspect]
     Indication: RECTAL CANCER
     Dosage: XELODA 300(CAPECITABINE), NOTE: IT IS ONE ADMINISTERING WEEKLY HOLIDAY MEDICINE FOR TWO WEEKS.
     Route: 048
     Dates: start: 20100625, end: 20100628
  24. CAPECITABINE [Suspect]
     Dosage: XELODA 300(CAPECITABINE), NOTE: IT IS ONE ADMINISTERING WEEKLY HOLIDAY MEDICINE FOR TWO WEEKS.
     Route: 048
     Dates: start: 20100901, end: 20100915
  25. CAPECITABINE [Suspect]
     Dosage: XELODA 300(CAPECITABINE), NOTE: IT IS ONE ADMINISTERING WEEKLY HOLIDAY MEDICINE FOR TWO WEEKS.
     Route: 048
     Dates: start: 20100922, end: 20101006
  26. OXALIPLATIN [Suspect]
     Route: 041
     Dates: start: 20100721, end: 20100721
  27. BEVACIZUMAB [Suspect]
     Route: 041
     Dates: start: 20100922, end: 20100922

REACTIONS (4)
  - PALMAR-PLANTAR ERYTHRODYSAESTHESIA SYNDROME [None]
  - HAEMOLYTIC ANAEMIA [None]
  - NEUROPATHY PERIPHERAL [None]
  - PYREXIA [None]
